FAERS Safety Report 24644972 (Version 1)
Quarter: 2024Q4

REPORT INFORMATION
  Report Type: Report from Study
  Country: US (occurrence: US)
  Receive Date: 20241121
  Receipt Date: 20241121
  Transmission Date: 20250114
  Serious: Yes (Other)
  Sender: JAZZ
  Company Number: US-JAZZ-2020-US-011925

PATIENT
  Sex: Male

DRUGS (16)
  1. XYREM [Suspect]
     Active Substance: SODIUM OXYBATE
     Indication: Narcolepsy
     Dosage: 2.25 GRAM, BID
     Route: 048
     Dates: start: 201107, end: 201108
  2. XYREM [Suspect]
     Active Substance: SODIUM OXYBATE
     Indication: Cataplexy
     Dosage: 4.5 GRAM, BID
     Route: 048
     Dates: start: 201108, end: 201110
  3. XYREM [Suspect]
     Active Substance: SODIUM OXYBATE
     Indication: Somnolence
     Dosage: 3 GRAM, BID
     Route: 048
     Dates: start: 201110, end: 201306
  4. ZOLOFT [Suspect]
     Active Substance: SERTRALINE HYDROCHLORIDE
     Indication: Product used for unknown indication
  5. SILENOR [Concomitant]
     Active Substance: DOXEPIN HYDROCHLORIDE
  6. WAKIX [Concomitant]
     Active Substance: PITOLISANT HYDROCHLORIDE
  7. AMOXICILLIN [Concomitant]
     Active Substance: AMOXICILLIN
  8. ACETAMINOPHEN [Concomitant]
     Active Substance: ACETAMINOPHEN
  9. ONDANSETRON HYDROCHLORIDE [Concomitant]
     Active Substance: ONDANSETRON HYDROCHLORIDE
  10. OXYCODONE HYDROCHLORIDE [Concomitant]
     Active Substance: OXYCODONE HYDROCHLORIDE
  11. RANITIDINE [Concomitant]
     Active Substance: RANITIDINE
  12. CYCLOBENZAPRINE [Concomitant]
     Active Substance: CYCLOBENZAPRINE
  13. GABAPENTIN [Concomitant]
     Active Substance: GABAPENTIN
  14. MAXALT-MLT [Concomitant]
     Active Substance: RIZATRIPTAN BENZOATE
  15. PROVIGIL [Concomitant]
     Active Substance: MODAFINIL
  16. WELLBUTRIN [Concomitant]
     Active Substance: BUPROPION HYDROCHLORIDE

REACTIONS (4)
  - Surgery [Unknown]
  - Feeling drunk [Unknown]
  - Blood pressure increased [Recovered/Resolved]
  - Weight decreased [Recovered/Resolved]
